FAERS Safety Report 10352905 (Version 1)
Quarter: 2014Q3

REPORT INFORMATION
  Report Type: Spontaneous
  Country: US (occurrence: US)
  Receive Date: 20140730
  Receipt Date: 20140730
  Transmission Date: 20150326
  Serious: No
  Sender: FDA-Public Use
  Company Number: US-ABBVIE-14P-163-1214269-00

PATIENT
  Age: 95 Year
  Sex: Female
  Weight: 40.86 kg

DRUGS (4)
  1. IPRATROPIUM [Concomitant]
     Active Substance: IPRATROPIUM
     Indication: ASTHMA
  2. ADVAIR HFA [Concomitant]
     Active Substance: FLUTICASONE PROPIONATE\SALMETEROL XINAFOATE
     Indication: ASTHMA
  3. SINGULAIR [Concomitant]
     Active Substance: MONTELUKAST SODIUM
     Indication: ASTHMA
  4. SYNTHROID [Suspect]
     Active Substance: LEVOTHYROXINE SODIUM
     Indication: PRODUCT USED FOR UNKNOWN INDICATION
     Dates: start: 2013, end: 2014

REACTIONS (8)
  - Alopecia [Unknown]
  - Sleep-related eating disorder [Unknown]
  - Dyspnoea [Unknown]
  - Hair disorder [Unknown]
  - Weight decreased [Unknown]
  - Insomnia [Unknown]
  - Joint swelling [Recovering/Resolving]
  - Joint swelling [Unknown]
